FAERS Safety Report 20940052 (Version 1)
Quarter: 2022Q2

REPORT INFORMATION
  Report Type: Spontaneous
  Country: US (occurrence: US)
  Receive Date: 20220609
  Receipt Date: 20220609
  Transmission Date: 20220720
  Serious: No
  Sender: FDA-Public Use
  Company Number: US-RIGEL PHARMACEUTICALS, INC.-2022FOS000226

PATIENT
  Sex: Female
  Weight: 84.444 kg

DRUGS (2)
  1. TAVALISSE [Suspect]
     Active Substance: FOSTAMATINIB
     Indication: Immune thrombocytopenia
     Dosage: 100 MG, BID
     Route: 048
     Dates: start: 20210925
  2. TAVALISSE [Suspect]
     Active Substance: FOSTAMATINIB
     Indication: Neutropenia

REACTIONS (6)
  - Platelet count decreased [Unknown]
  - Anaemia [Unknown]
  - Emergency care [Unknown]
  - Cholelithiasis [Unknown]
  - Fatigue [Unknown]
  - Hepatic enzyme increased [Unknown]
